FAERS Safety Report 8896202 (Version 6)
Quarter: 2013Q2

REPORT INFORMATION
  Report Type: Report from Study
  Country: US (occurrence: US)
  Receive Date: 20121108
  Receipt Date: 20130409
  Transmission Date: 20140414
  Serious: Yes (Death)
  Sender: FDA-Public Use
  Company Number: PHHO2012US015993

PATIENT
  Age: 48 Year
  Sex: Female
  Weight: 65 kg

DRUGS (6)
  1. FANAPT [Suspect]
     Indication: SCHIZOPHRENIA
     Dosage: UNK
     Route: 048
     Dates: start: 20120119
  2. ATROVENT HFA [Concomitant]
     Indication: ASTHMA
     Dosage: 17 UG, 2 PUFFS QID
  3. PROAIR HFA [Concomitant]
     Indication: ASTHMA
     Dosage: 216 UG, 2 PUFFS, QID
  4. AMBIEN [Concomitant]
     Indication: INSOMNIA
     Dosage: 10 MG, QHS PRN
     Dates: start: 20111031
  5. OXYBUTYNIN [Concomitant]
     Indication: URINARY INCONTINENCE
     Dosage: 5 MG, QD
     Dates: start: 20111227
  6. COGENTIN [Concomitant]
     Indication: EXTRAPYRAMIDAL DISORDER
     Dosage: 2 MG, BID
     Dates: start: 20120323

REACTIONS (1)
  - Arrhythmia [Fatal]
